FAERS Safety Report 7396889-7 (Version None)
Quarter: 2011Q2

REPORT INFORMATION
  Report Type: 
  Country: None (occurrence: None)
  Receive Date: 20110406
  Receipt Date: 20110103
  Transmission Date: 20111010
  Serious: No
  Sender: FDA-Public Use
  Company Number: US-BAYER-2011-028278

PATIENT
  Sex: Female
  Weight: 63 kg

DRUGS (6)
  1. MULTI-VITAMIN [Concomitant]
  2. ALEVE (CAPLET) [Suspect]
     Indication: NASOPHARYNGITIS
     Dosage: 3 DF, UNK
     Route: 048
     Dates: start: 20101228, end: 20101229
  3. DIOVAN [Concomitant]
  4. CALCIUM D [Concomitant]
  5. VITAMIN B-12 [Concomitant]
  6. NORVASC [Concomitant]

REACTIONS (2)
  - RASH PAPULAR [None]
  - RASH [None]
